FAERS Safety Report 4576557-7 (Version None)
Quarter: 2005Q1

REPORT INFORMATION
  Report Type: 
  Country: None (occurrence: None)
  Receive Date: 20050119
  Receipt Date: 20040520
  Transmission Date: 20050727
  Serious: Yes (Hospitalization)
  Sender: FDA-Public Use
  Company Number: A03200401642

PATIENT
  Age: 83 Year
  Sex: Male

DRUGS (11)
  1. PLAVIX [Suspect]
     Dosage: 75 MG QD - ORAL
     Route: 048
  2. LIPITOR [Suspect]
     Indication: HYPERCHOLESTEROLAEMIA
     Dosage: 20 MG QOD - ORAL
     Route: 048
  3. COZAAR [Suspect]
     Indication: CARDIAC DISORDER
     Dosage: 12.5 MG QOD - ORAL
     Route: 048
  4. DIPYRIDAMOLE - UNKOWN - UNIT DOSE : UNKNOWN [Suspect]
     Dosage: 75 MG BID - ORAL
     Route: 048
  5. ECOTRIN - ACETYLSALICYLIC ACID - UNKNOWN - UNIT DOSE : UNKNOWN [Suspect]
     Dates: end: 20040401
  6. CALCIUM GLUCONATE [Concomitant]
  7. VITAMIN D [Concomitant]
  8. LEVOBUNOLOL HYDROCHLORIDE [Concomitant]
  9. BICALUTAMIDE [Concomitant]
  10. RETINOL, VITAMIN B NOS [Concomitant]
  11. ZOLEDRONIC ACID [Concomitant]

REACTIONS (9)
  - ABDOMINAL PAIN [None]
  - ASTHENIA [None]
  - CONSTIPATION [None]
  - DECREASED APPETITE [None]
  - GASTRIC ULCER [None]
  - HAEMATOCHEZIA [None]
  - HEART RATE DECREASED [None]
  - HYPOTENSION [None]
  - STOMACH DISCOMFORT [None]
